FAERS Safety Report 16367920 (Version 1)
Quarter: 2019Q2

REPORT INFORMATION
  Report Type: Spontaneous
  Country: US (occurrence: US)
  Receive Date: 20190529
  Receipt Date: 20190529
  Transmission Date: 20190711
  Serious: Yes (Hospitalization, Other)
  Sender: FDA-Public Use
  Company Number: US-PFIZER INC-2019221404

PATIENT
  Age: 65 Year
  Sex: Male
  Weight: 107.95 kg

DRUGS (1)
  1. LYRICA [Suspect]
     Active Substance: PREGABALIN
     Indication: NEUROPATHY PERIPHERAL
     Dosage: 50 MG, 3X/DAY (50MG; 3 TIMES A DAY, BY MOUTH)
     Route: 048
     Dates: start: 201804

REACTIONS (4)
  - Ankle fracture [Unknown]
  - Fluid overload [Recovered/Resolved]
  - Cellulitis [Unknown]
  - Circulatory collapse [Unknown]

NARRATIVE: CASE EVENT DATE: 20180724
